FAERS Safety Report 4456120-9 (Version None)
Quarter: 2004Q3

REPORT INFORMATION
  Report Type: 
  Country: None (occurrence: None)
  Receive Date: 20040920
  Receipt Date: 20040907
  Transmission Date: 20050211
  Serious: Yes (Other)
  Sender: FDA-Public Use
  Company Number: 2004063021

PATIENT
  Age: 76 Year
  Sex: Female
  Weight: 39.5 kg

DRUGS (3)
  1. AMLODIN (AMLODIPINE) [Suspect]
     Indication: HYPERTENSION
     Dosage: 5 MG (5 MG, 1 IN 1 D), ORAL
     Route: 048
     Dates: start: 20040101, end: 20040207
  2. VALPROATE SODIUM [Suspect]
     Indication: EPILEPSY
     Dosage: 600 MG (300 MG, 2 IN 1 D), ORAL
     Route: 048
     Dates: start: 20040105, end: 20040208
  3. TEPRENONE (TEPRENONE) [Concomitant]

REACTIONS (2)
  - EPILEPSY [None]
  - LIVER DISORDER [None]
